FAERS Safety Report 9440201 (Version 1)
Quarter: 2013Q3

REPORT INFORMATION
  Report Type: Spontaneous
  Country: JP (occurrence: JP)
  Receive Date: 20130805
  Receipt Date: 20130805
  Transmission Date: 20140515
  Serious: Yes (Other)
  Sender: FDA-Public Use
  Company Number: PHHY2013JP083024

PATIENT
  Sex: Female

DRUGS (6)
  1. DIOVAN [Suspect]
     Dosage: UNK UKN, UNK
     Route: 048
  2. DEPAS [Concomitant]
     Dosage: UNK UKN, UNK
     Route: 048
  3. BAYASPIRIN [Concomitant]
     Dosage: UNK UKN, UNK
     Route: 048
  4. VASOLAN [Concomitant]
     Dosage: UNK UKN, UNK
     Route: 048
  5. MUCOSTA [Concomitant]
  6. GASTER [Concomitant]

REACTIONS (5)
  - Colon cancer [Unknown]
  - Periodontal disease [Unknown]
  - Gingival pain [Unknown]
  - Eczema [Unknown]
  - Pruritus [Unknown]
